FAERS Safety Report 18328797 (Version 1)
Quarter: 2020Q3

REPORT INFORMATION
  Report Type: Spontaneous
  Country: CN (occurrence: CN)
  Receive Date: 20200930
  Receipt Date: 20200930
  Transmission Date: 20201103
  Serious: Yes (Hospitalization)
  Sender: FDA-Public Use
  Company Number: CN-ELI_LILLY_AND_COMPANY-CN202009010227

PATIENT
  Age: 85 Year
  Sex: Female

DRUGS (1)
  1. HUMALOG MIX50/50 [Suspect]
     Active Substance: INSULIN LISPRO
     Indication: TYPE 2 DIABETES MELLITUS
     Dosage: 16 U, BID
     Route: 058
     Dates: start: 2018

REACTIONS (3)
  - Liver function test increased [Unknown]
  - Renal impairment [Unknown]
  - Coronary artery disease [Unknown]
